FAERS Safety Report 6230032-2 (Version None)
Quarter: 2009Q2

REPORT INFORMATION
  Report Type: 
  Country: None (occurrence: None)
  Receive Date: 20090615
  Receipt Date: 20090609
  Transmission Date: 20091009
  Serious: Yes (Death)
  Sender: FDA-Public Use
  Company Number: US-PFIZER INC-2009211036

PATIENT
  Sex: Male
  Weight: 57.143 kg

DRUGS (8)
  1. SUTENT [Suspect]
     Indication: RENAL CELL CARCINOMA
     Dosage: UNK
     Route: 048
     Dates: start: 20070901
  2. SYMBICORT [Concomitant]
     Dosage: UNK
  3. SPIRIVA [Concomitant]
     Dosage: UNK
  4. COUMADIN [Concomitant]
     Dosage: UNK
  5. MULTI-VITAMINS [Concomitant]
     Dosage: UNK
  6. TYLENOL (CAPLET) [Concomitant]
     Dosage: UNK
  7. OPTIVAR [Concomitant]
     Dosage: UNK
     Route: 047
  8. MAALOX [Concomitant]

REACTIONS (2)
  - RESPIRATORY FAILURE [None]
  - SEPSIS [None]
